FAERS Safety Report 23800555 (Version 1)
Quarter: 2024Q2

REPORT INFORMATION
  Report Type: Spontaneous
  Country: US (occurrence: US)
  Receive Date: 20240430
  Receipt Date: 20240430
  Transmission Date: 20240716
  Serious: Yes (Other)
  Sender: FDA-Public Use
  Company Number: US-MYLANLABS-2024M1039293

PATIENT
  Age: 5 Decade
  Sex: Female

DRUGS (20)
  1. SILDENAFIL [Suspect]
     Active Substance: SILDENAFIL
     Indication: Cutaneous vasculitis
     Dosage: 25 MILLIGRAM, TID, RECEIVED 3 TIMES DAILY
     Route: 065
  2. SILDENAFIL [Suspect]
     Active Substance: SILDENAFIL
     Indication: Systemic lupus erythematosus
     Dosage: 12.5 MILLIGRAM, BID
     Route: 065
  3. PREDNISONE [Suspect]
     Active Substance: PREDNISONE
     Indication: Cutaneous vasculitis
     Dosage: 10 MILLIGRAM, QD
     Route: 065
  4. PREDNISONE [Suspect]
     Active Substance: PREDNISONE
     Indication: Systemic lupus erythematosus
  5. NIFEDIPINE [Suspect]
     Active Substance: NIFEDIPINE
     Indication: Systemic lupus erythematosus
     Dosage: UNK
     Route: 065
  6. NIFEDIPINE [Suspect]
     Active Substance: NIFEDIPINE
     Indication: Cutaneous vasculitis
  7. VERAPAMIL [Suspect]
     Active Substance: VERAPAMIL HYDROCHLORIDE
     Indication: Cutaneous vasculitis
     Dosage: UNK
     Route: 065
  8. VERAPAMIL [Suspect]
     Active Substance: VERAPAMIL HYDROCHLORIDE
     Indication: Systemic lupus erythematosus
  9. AZATHIOPRINE [Suspect]
     Active Substance: AZATHIOPRINE
     Indication: Systemic lupus erythematosus
     Dosage: 150 MILLIGRAM, QD
     Route: 065
  10. AZATHIOPRINE [Suspect]
     Active Substance: AZATHIOPRINE
     Indication: Cutaneous vasculitis
  11. BELIMUMAB [Suspect]
     Active Substance: BELIMUMAB
     Indication: Systemic lupus erythematosus
     Dosage: 10 MILLIGRAM/KILOGRAM, MONTHLY, RECEIVED INFUSION
     Route: 065
  12. BELIMUMAB [Suspect]
     Active Substance: BELIMUMAB
     Indication: Cutaneous vasculitis
  13. HYDROXYCHLOROQUINE [Suspect]
     Active Substance: HYDROXYCHLOROQUINE
     Indication: Cutaneous vasculitis
     Dosage: 200 MILLIGRAM, BID
     Route: 065
  14. HYDROXYCHLOROQUINE [Suspect]
     Active Substance: HYDROXYCHLOROQUINE
     Indication: Systemic lupus erythematosus
  15. ASPIRIN [Concomitant]
     Active Substance: ASPIRIN
     Indication: Systemic lupus erythematosus
     Dosage: 325 MILLIGRAM, QD
     Route: 065
  16. ASPIRIN [Concomitant]
     Active Substance: ASPIRIN
     Indication: Cutaneous vasculitis
  17. PENTOXIFYLLINE [Concomitant]
     Active Substance: PENTOXIFYLLINE
     Indication: Systemic lupus erythematosus
     Dosage: 400 MILLIGRAM, TID (RECEIVED 3 TIMES DAILY)
     Route: 065
  18. PENTOXIFYLLINE [Concomitant]
     Active Substance: PENTOXIFYLLINE
     Indication: Cutaneous vasculitis
     Dosage: 800 MILLIGRAM, TID (RECEIVED 3 TIMES DAILY)
     Route: 065
  19. ONABOTULINUMTOXINA [Concomitant]
     Active Substance: ONABOTULINUMTOXINA
     Indication: Systemic lupus erythematosus
     Dosage: UNK, RECEIVED 2.5 UNITS/100 ?L
     Route: 065
  20. ONABOTULINUMTOXINA [Concomitant]
     Active Substance: ONABOTULINUMTOXINA
     Indication: Cutaneous vasculitis

REACTIONS (3)
  - Drug ineffective [Unknown]
  - Headache [Unknown]
  - Off label use [Unknown]
